FAERS Safety Report 8792365 (Version 1)
Quarter: 2012Q4

REPORT INFORMATION
  Report Type: 
  Country: US (occurrence: US)
  Receive Date: 20120918
  Receipt Date: 20120918
  Transmission Date: 20130627
  Serious: Yes (Other)
  Sender: FDA-Public Use
  Company Number: US-PFIZER INC-2012227418

PATIENT

DRUGS (1)
  1. PREMARIN [Suspect]

REACTIONS (3)
  - Cerebrovascular accident [Unknown]
  - Osteopenia [Unknown]
  - Arthritis [Unknown]
